FAERS Safety Report 9955581 (Version 1)
Quarter: 2014Q1

REPORT INFORMATION
  Report Type: Report from Study
  Country: US (occurrence: US)
  Receive Date: 20140304
  Receipt Date: 20140304
  Transmission Date: 20141002
  Serious: No
  Sender: FDA-Public Use
  Company Number: US-ABBVIE-13P-163-1073246-00

PATIENT
  Sex: Female
  Weight: 97.16 kg

DRUGS (8)
  1. HUMIRA [Suspect]
     Indication: CROHN^S DISEASE
     Dates: start: 2012, end: 20130305
  2. PENTASA [Concomitant]
     Indication: CROHN^S DISEASE
  3. 6 MP [Concomitant]
     Indication: PRODUCT USED FOR UNKNOWN INDICATION
  4. TRAMADOL [Concomitant]
     Indication: PAIN
  5. BENTYL [Concomitant]
     Indication: PAIN
  6. DONNATAL [Concomitant]
     Indication: PAIN
  7. VITAMIN D [Concomitant]
     Indication: VITAMIN D DECREASED
  8. MULTIVITAMIN [Concomitant]
     Indication: PRODUCT USED FOR UNKNOWN INDICATION

REACTIONS (1)
  - Crohn^s disease [Not Recovered/Not Resolved]
